FAERS Safety Report 6425287-5 (Version None)
Quarter: 2009Q4

REPORT INFORMATION
  Report Type: 
  Country: None (occurrence: None)
  Receive Date: 20091103
  Receipt Date: 20091026
  Transmission Date: 20100525
  Serious: Yes (Other)
  Sender: FDA-Public Use
  Company Number: FR-BRISTOL-MYERS SQUIBB COMPANY-14840235

PATIENT
  Sex: Female

DRUGS (2)
  1. ERBITUX [Suspect]
     Route: 042
  2. NEUPOGEN [Interacting]
     Route: 042
     Dates: start: 20091016

REACTIONS (2)
  - ACUTE FEBRILE NEUTROPHILIC DERMATOSIS [None]
  - DRUG INTERACTION [None]
